FAERS Safety Report 4344792-9 (Version None)
Quarter: 2004Q2

REPORT INFORMATION
  Report Type: 
  Country: None (occurrence: None)
  Receive Date: 20040420
  Receipt Date: 20040412
  Transmission Date: 20050107
  Serious: Yes (Hospitalization)
  Sender: FDA-Public Use
  Company Number: 2004024540

PATIENT
  Age: 61 Year
  Sex: Male

DRUGS (12)
  1. LIPITOR [Suspect]
     Indication: ILL-DEFINED DISORDER
     Dosage: 20 MG (DAILY), ORAL
     Route: 048
     Dates: start: 20030119, end: 20040401
  2. TIAPRIDE HYDROCHLORIDE (TIAPRIDE HYDROCHLORIDE) [Suspect]
     Indication: ILL-DEFINED DISORDER
     Dosage: 80 MG (DAILY), ORAL
     Route: 048
     Dates: start: 19921201, end: 20040401
  3. HALOPERIDOL [Suspect]
     Indication: ILL-DEFINED DISORDER
     Dosage: ORAL
     Route: 048
     Dates: start: 19921201, end: 20040401
  4. FLUNITRAZEPAM (FLUNITRAZEPAM) [Suspect]
     Indication: ILL-DEFINED DISORDER
     Dosage: 2 MG (DAILY), ORAL
     Route: 048
  5. TROXIPIDE (TROXIPIDE) [Concomitant]
  6. ALL OTHER THERAPEUTIC PRODUCTS (ALL OTHER THERAPEUTIC PRODUCTS) [Concomitant]
  7. ETHYL LOFLAZEPATE (ETHYL LOFLAZEPATE) [Concomitant]
  8. MAZATICOL HYDROCHLORIDE (MAZATICOL HYDROCHLORIDE) [Concomitant]
  9. MAGNESIUM OXIDE (MAGNESIUM OXIDE) [Concomitant]
  10. ALL OTHER THERAPEUTIC PRODUCTS (ALL OTHER THERAPEUTIC PRODUCTS) [Concomitant]
  11. NICERGOLINE (NICERGOLINE) [Concomitant]
  12. ALL OTHER THERAPEUTIC PRODUCTS (ALL OTHER THERAPEUTIC PRODUCTS) [Concomitant]

REACTIONS (4)
  - DIALYSIS [None]
  - GAIT DISTURBANCE [None]
  - NEPHRITIS [None]
  - RHABDOMYOLYSIS [None]
